FAERS Safety Report 6877648-8 (Version None)
Quarter: 2010Q3

REPORT INFORMATION
  Report Type: 
  Country: None (occurrence: None)
  Receive Date: 20100727
  Receipt Date: 20100503
  Transmission Date: 20110219
  Serious: No
  Sender: FDA-Public Use
  Company Number: US-ABBOTT-10P-163-0642889-00

PATIENT
  Sex: Female
  Weight: 59.02 kg

DRUGS (4)
  1. SYNTHROID [Suspect]
     Indication: HYPOTHYROIDISM
     Dates: start: 19980101
  2. PRAVACHOL [Concomitant]
     Indication: LOW DENSITY LIPOPROTEIN INCREASED
  3. VITAMINS [Concomitant]
     Indication: VITAMIN SUPPLEMENTATION
  4. CALCIUM [Concomitant]
     Indication: MINERAL SUPPLEMENTATION

REACTIONS (3)
  - CONTUSION [None]
  - FALL [None]
  - OSTEOPENIA [None]
